FAERS Safety Report 9328761 (Version 1)
Quarter: 2013Q2

REPORT INFORMATION
  Report Type: Report from Study
  Country: DE (occurrence: DE)
  Receive Date: 20130604
  Receipt Date: 20130604
  Transmission Date: 20140414
  Serious: Yes (Hospitalization)
  Sender: FDA-Public Use
  Company Number: DE-BAXTER-2013BAX020074

PATIENT
  Sex: Male

DRUGS (11)
  1. ENDOXAN 1G [Suspect]
     Indication: B-CELL LYMPHOMA
     Route: 042
     Dates: start: 20130311, end: 20130422
  2. RITUXIMAB [Suspect]
     Indication: B-CELL LYMPHOMA
     Route: 042
     Dates: start: 20130306, end: 20130422
  3. PEGFILGRASTIM [Suspect]
     Indication: B-CELL LYMPHOMA
     Route: 058
     Dates: start: 20130314, end: 20130425
  4. DOXORUBICIN [Suspect]
     Indication: B-CELL LYMPHOMA
     Route: 042
     Dates: start: 20130311, end: 20130422
  5. VINCRISTINE [Suspect]
     Indication: B-CELL LYMPHOMA
     Route: 042
     Dates: start: 20130311, end: 20130422
  6. PREDNISONE [Suspect]
     Indication: B-CELL LYMPHOMA
     Route: 065
     Dates: start: 20130302, end: 20130426
  7. MACROGOL [Concomitant]
     Indication: CONSTIPATION
     Route: 065
     Dates: start: 20130425
  8. SODIUM CHLORIDE [Concomitant]
     Indication: CONSTIPATION
     Route: 065
     Dates: start: 20130425
  9. SODIUM BICARBONATE [Concomitant]
     Indication: CONSTIPATION
     Route: 065
     Dates: start: 20130425
  10. SODIUM CHLORIDE [Concomitant]
     Indication: CONSTIPATION
     Route: 065
     Dates: start: 20130425
  11. POTASSIUM CHLORIDE [Concomitant]
     Indication: CONSTIPATION
     Route: 065
     Dates: start: 20130425

REACTIONS (1)
  - Infection [Recovered/Resolved]
